FAERS Safety Report 6969669-1 (Version None)
Quarter: 2010Q3

REPORT INFORMATION
  Report Type: 
  Country: None (occurrence: None)
  Receive Date: 20100908
  Receipt Date: 20100830
  Transmission Date: 20110219
  Serious: No
  Sender: FDA-Public Use
  Company Number: US-US-EMD SERONO, INC.-7015593

PATIENT
  Sex: Female
  Weight: 68 kg

DRUGS (6)
  1. SAIZEN [Suspect]
     Indication: GROWTH HORMONE DEFICIENCY
     Dates: start: 20100820
  2. OXYGEN [Concomitant]
  3. VITAMIN D [Concomitant]
     Dates: start: 20091118
  4. CALCIUM [Concomitant]
     Dates: start: 20091118
  5. SYNTHROID [Concomitant]
     Dates: start: 20080625
  6. ADDERALL 10 [Concomitant]
     Dates: start: 20080625

REACTIONS (3)
  - HEART RATE INCREASED [None]
  - OXYGEN SATURATION DECREASED [None]
  - RESPIRATORY RATE INCREASED [None]
